FAERS Safety Report 7231625-6 (Version None)
Quarter: 2011Q1

REPORT INFORMATION
  Report Type: 
  Country: None (occurrence: None)
  Receive Date: 20110118
  Receipt Date: 20110114
  Transmission Date: 20110831
  Serious: Yes (Hospitalization, Other)
  Sender: FDA-Public Use
  Company Number: US-PFIZER INC-2011010198

PATIENT
  Sex: Female
  Weight: 88.435 kg

DRUGS (3)
  1. CHANTIX [Suspect]
     Indication: SMOKING CESSATION THERAPY
     Dosage: 0.5 MG, 1X/DAY
     Route: 048
  2. INSULIN [Concomitant]
     Indication: DIABETES MELLITUS
     Dosage: 68 IU, 1X/DAY EVERY EVENING
  3. METFORMIN [Concomitant]
     Indication: DIABETES MELLITUS
     Dosage: 500 MG, 2X/DAY
     Route: 048

REACTIONS (9)
  - TREMOR [None]
  - RESTLESSNESS [None]
  - SLEEP DISORDER [None]
  - SUICIDE ATTEMPT [None]
  - ANXIETY [None]
  - FATIGUE [None]
  - SUICIDAL IDEATION [None]
  - NERVOUSNESS [None]
  - PANIC ATTACK [None]
